APPROVED DRUG PRODUCT: HYDROCORTISONE
Active Ingredient: HYDROCORTISONE
Strength: 1%
Dosage Form/Route: CREAM;TOPICAL
Application: A087838 | Product #001
Applicant: PHARMAFAIR INC
Approved: Jul 28, 1982 | RLD: No | RS: No | Type: DISCN